FAERS Safety Report 10096588 (Version 2)
Quarter: 2014Q2

REPORT INFORMATION
  Report Type: Spontaneous
  Country: US (occurrence: US)
  Receive Date: 20140422
  Receipt Date: 20140422
  Transmission Date: 20141212
  Serious: No
  Sender: FDA-Public Use
  Company Number: US-GILEAD-2012-0063930

PATIENT
  Sex: Male

DRUGS (4)
  1. LETAIRIS [Suspect]
     Indication: COR PULMONALE CHRONIC
     Dosage: 5 MG, QD
     Route: 048
     Dates: start: 20121017
  2. LETAIRIS [Suspect]
     Indication: PULMONARY ARTERIAL HYPERTENSION
  3. LETAIRIS [Suspect]
     Indication: CARDIAC FAILURE CONGESTIVE
  4. LETAIRIS [Suspect]
     Indication: DIASTOLIC DYSFUNCTION

REACTIONS (4)
  - Insomnia [Recovering/Resolving]
  - Unevaluable event [Unknown]
  - Oedema peripheral [Unknown]
  - Nasal congestion [Unknown]
